FAERS Safety Report 8477388-8 (Version None)
Quarter: 2012Q2

REPORT INFORMATION
  Report Type: 
  Country: None (occurrence: None)
  Receive Date: 20120629
  Receipt Date: 20120621
  Transmission Date: 20120825
  Serious: Yes (Other)
  Sender: FDA-Public Use
  Company Number: US-BAYER-2012-042464

PATIENT
  Age: 52 Year
  Sex: Female
  Weight: 56 kg

DRUGS (22)
  1. VASOTEC [Concomitant]
     Dosage: 5 MG, UNK
  2. MAGNEVIST [Suspect]
     Indication: ANGIOGRAM
     Dosage: UNK
     Dates: start: 20050930, end: 20050930
  3. GADOLINIUM IN UNSPECIFIED DRUG [Suspect]
     Indication: ANGIOGRAM
     Dosage: UNK
     Dates: start: 20051001, end: 20051001
  4. GADOLINIUM IN UNSPECIFIED DRUG [Suspect]
     Indication: NUCLEAR MAGNETIC RESONANCE IMAGING
     Dosage: UNK
     Dates: start: 20060404, end: 20060404
  5. NORMODYNE [Concomitant]
  6. VITAMIN B-12 [Concomitant]
  7. FOLIC ACID [Concomitant]
     Dosage: 1 MG, UNK
  8. NEPHROCAPS [Concomitant]
     Dosage: 1 DF, QD
  9. MAGNEVIST [Suspect]
     Dosage: UNK
     Dates: start: 20051001, end: 20051001
  10. CLONIDINE [Concomitant]
     Dosage: 0.3 MG, BID
  11. MAGNEVIST [Suspect]
     Dosage: UNK
     Dates: start: 20060404, end: 20060404
  12. ADALAT [Concomitant]
     Dosage: 30 MG, UNK
  13. AMIODARONE HYDROCHLORIDE [Concomitant]
  14. LOPRESSOR [Concomitant]
  15. HYDRALAZINE HYDROCHLORIDE [Concomitant]
     Dosage: 50 MG, QD
  16. ASPIRIN [Concomitant]
     Dosage: 80 MG, UNK
  17. TOPROL-XL [Concomitant]
     Dosage: 50 MG, UNK
  18. LISINOPRIL [Concomitant]
     Dosage: 40 MG IN THE MORNING AND 20 MG IN THE EVENING
  19. RENAGEL [Concomitant]
     Dosage: 800 MG, TID
  20. EPOETIN ALFA [Concomitant]
  21. LASIX [Concomitant]
     Dosage: 40 MG, UNK
  22. COZAAR [Concomitant]
     Dosage: 100 MG, QD

REACTIONS (22)
  - SKIN DISORDER [None]
  - JOINT CONTRACTURE [None]
  - EXTREMITY CONTRACTURE [None]
  - SCLERODACTYLIA [None]
  - GENERAL PHYSICAL HEALTH DETERIORATION [None]
  - PRURITUS [None]
  - SCAR [None]
  - NEPHROGENIC SYSTEMIC FIBROSIS [None]
  - SKIN FIBROSIS [None]
  - SKIN INDURATION [None]
  - MOTOR DYSFUNCTION [None]
  - SKIN TIGHTNESS [None]
  - INJURY [None]
  - ANHEDONIA [None]
  - SKIN DISCOLOURATION [None]
  - PAIN [None]
  - DEPRESSION [None]
  - PEAU D'ORANGE [None]
  - ANXIETY [None]
  - DEFORMITY [None]
  - MOBILITY DECREASED [None]
  - EMOTIONAL DISTRESS [None]
